FAERS Safety Report 15628051 (Version 1)
Quarter: 2018Q4

REPORT INFORMATION
  Report Type: Spontaneous
  Country: US (occurrence: US)
  Receive Date: 20181116
  Receipt Date: 20181116
  Transmission Date: 20190205
  Serious: No
  Sender: FDA-Public Use
  Company Number: US-PURDUE-USA-2018-0142973

PATIENT
  Sex: Male

DRUGS (3)
  1. MS CONTIN [Suspect]
     Active Substance: MORPHINE SULFATE
     Indication: NERVE COMPRESSION
  2. MS CONTIN [Suspect]
     Active Substance: MORPHINE SULFATE
     Indication: FIBROMYALGIA
  3. MS CONTIN [Suspect]
     Active Substance: MORPHINE SULFATE
     Indication: PAIN
     Dosage: 1 TABLET, UNK
     Route: 048

REACTIONS (1)
  - Drug ineffective [Recovered/Resolved]
